FAERS Safety Report 8421980-3 (Version None)
Quarter: 2012Q2

REPORT INFORMATION
  Report Type: 
  Country: None (occurrence: None)
  Receive Date: 20120605
  Receipt Date: 20120605
  Transmission Date: 20120825
  Serious: Yes (Disabling)
  Sender: FDA-Public Use
  Company Number: None

PATIENT
  Age: 61 Year
  Sex: Male
  Weight: 101.1521 kg

DRUGS (1)
  1. RISPERIDONE [Suspect]
     Indication: TREMOR
     Dosage: 3 MG 3 TIMES DAILY
     Dates: start: 20111002, end: 20120402

REACTIONS (1)
  - PARKINSON'S DISEASE [None]
